FAERS Safety Report 8791125 (Version 1)
Quarter: 2012Q4

REPORT INFORMATION
  Report Type: Spontaneous
  Country: AU (occurrence: None)
  Receive Date: 20120912
  Receipt Date: 20120912
  Transmission Date: 20130627
  Serious: Yes (Death)
  Sender: FDA-Public Use
  Company Number: 2012US007659

PATIENT

DRUGS (1)
  1. TARCEVA [Suspect]
     Indication: GASTRIC CANCER
     Route: 048

REACTIONS (1)
  - Off label use [None]
